FAERS Safety Report 13331519 (Version 1)
Quarter: 2017Q1

REPORT INFORMATION
  Report Type: Spontaneous
  Country: US (occurrence: US)
  Receive Date: 20170314
  Receipt Date: 20170314
  Transmission Date: 20170428
  Serious: Yes (Other)
  Sender: FDA-Public Use
  Company Number: PHHY2017US033456

PATIENT
  Age: 25 Year
  Sex: Female

DRUGS (1)
  1. PREDNISONE. [Suspect]
     Active Substance: PREDNISONE
     Indication: HYPEREOSINOPHILIC SYNDROME
     Dosage: 40 MG, QD
     Route: 065

REACTIONS (5)
  - Depression [Unknown]
  - Weight increased [Unknown]
  - Headache [Unknown]
  - Mood swings [Unknown]
  - Suicidal ideation [Unknown]
